FAERS Safety Report 24955724 (Version 1)
Quarter: 2025Q1

REPORT INFORMATION
  Report Type: Spontaneous
  Country: JP (occurrence: JP)
  Receive Date: 20250211
  Receipt Date: 20250211
  Transmission Date: 20250409
  Serious: Yes (Life-Threatening)
  Sender: MALLINCKRODT
  Company Number: JP-MALLINCKRODT-MNK202500657

PATIENT
  Age: 80 Year
  Sex: Male

DRUGS (2)
  1. NITRIC OXIDE [Suspect]
     Active Substance: NITRIC OXIDE
     Indication: Pulmonary hypertension
     Route: 055
     Dates: start: 202411, end: 20241121
  2. NITRIC OXIDE [Suspect]
     Active Substance: NITRIC OXIDE
     Route: 055
     Dates: start: 20241203, end: 20241224

REACTIONS (2)
  - Cardiac arrest [Unknown]
  - Pulmonary infarction [Unknown]

NARRATIVE: CASE EVENT DATE: 20241203
